FAERS Safety Report 9055099 (Version 2)
Quarter: 2013Q1

REPORT INFORMATION
  Report Type: Spontaneous
  Country: ZA (occurrence: ZA)
  Receive Date: 20130206
  Receipt Date: 20130305
  Transmission Date: 20140127
  Serious: Yes (Other)
  Sender: FDA-Public Use
  Company Number: ZA-SANOFI-AVENTIS-2013SA007922

PATIENT
  Age: 52 Year
  Sex: Female

DRUGS (11)
  1. APIDRA [Suspect]
     Indication: TYPE 1 DIABETES MELLITUS
     Dosage: START DATE: A FEW YEARS AGO?DOSE AND DAILY DOSE: 40-100 IU ?FORM VIAL?ROUTE:PUMP
     Route: 058
  2. MOVICOL [Concomitant]
     Indication: NEUROPATHY PERIPHERAL
     Route: 048
  3. LYRICA [Concomitant]
     Indication: NEUROPATHY PERIPHERAL
     Route: 048
  4. LYRICA [Concomitant]
     Indication: NEUROPATHY PERIPHERAL
     Route: 048
  5. BISOPROLOL FUMARATE [Concomitant]
     Indication: BLOOD PRESSURE
     Route: 048
  6. AMLOC [Concomitant]
     Indication: BLOOD PRESSURE
     Route: 048
  7. NUELIN [Concomitant]
     Indication: ASTHMA
     Route: 048
  8. BUDESONIDE/FORMOTEROL [Concomitant]
     Indication: ASTHMA
     Route: 055
  9. CYMBALTA [Concomitant]
     Indication: POST-TRAUMATIC STRESS DISORDER
     Route: 048
  10. ANTIDEPRESSANTS [Concomitant]
     Indication: POST-TRAUMATIC STRESS DISORDER
     Route: 048
  11. IVEDAL [Concomitant]
     Indication: SLEEP DISORDER
     Route: 048

REACTIONS (7)
  - Diabetic ketoacidosis [Recovered/Resolved]
  - Malaise [Unknown]
  - Nausea [Unknown]
  - Vomiting [Unknown]
  - Abdominal pain lower [Unknown]
  - Blood glucose increased [Not Recovered/Not Resolved]
  - Product gel formation [Unknown]
